FAERS Safety Report 16314378 (Version 1)
Quarter: 2019Q2

REPORT INFORMATION
  Report Type: Spontaneous
  Country: US (occurrence: US)
  Receive Date: 20190514
  Receipt Date: 20190514
  Transmission Date: 20190711
  Serious: Yes (Hospitalization)
  Sender: FDA-Public Use
  Company Number: None

PATIENT
  Age: 70 Year
  Sex: Male
  Weight: 88.9 kg

DRUGS (9)
  1. CHOLECALCIFEROL 1000 IU [Concomitant]
  2. ATORVASTATIN 80 MG [Concomitant]
     Active Substance: ATORVASTATIN
  3. AMLODIPINE 10 MG [Concomitant]
     Active Substance: AMLODIPINE BESYLATE
  4. ISOSORBIDE MONONITRATE 30 MG [Concomitant]
  5. INSULIN ASPARTATE 100 UNITS/ML FLEXPEN [Concomitant]
  6. CIPROFLOXACIN. [Suspect]
     Active Substance: CIPROFLOXACIN
     Indication: URINARY TRACT INFECTION
     Route: 048
     Dates: start: 20190314, end: 20190319
  7. ASPIRIN 81 MG [Concomitant]
     Active Substance: ASPIRIN
  8. TAMSULOSIN 0.4 MG [Concomitant]
     Active Substance: TAMSULOSIN
  9. CALCIUM ACETATE 667 MG [Concomitant]
     Active Substance: CALCIUM ACETATE

REACTIONS (1)
  - Angioedema [None]

NARRATIVE: CASE EVENT DATE: 20190316
